FAERS Safety Report 14449865 (Version 3)
Quarter: 2018Q2

REPORT INFORMATION
  Report Type: Spontaneous
  Country: BR (occurrence: BR)
  Receive Date: 20180128
  Receipt Date: 20180525
  Transmission Date: 20180711
  Serious: Yes (Hospitalization, Other)
  Sender: FDA-Public Use
  Company Number: BR-B.I. PHARMACEUTICALS,INC./RIDGEFIELD-2018-BI-004059

PATIENT
  Sex: Female

DRUGS (1)
  1. PRADAXA [Suspect]
     Active Substance: DABIGATRAN ETEXILATE MESYLATE
     Indication: ATRIAL FIBRILLATION
     Route: 065

REACTIONS (11)
  - Pericardial effusion [Recovered/Resolved]
  - Renal injury [Unknown]
  - Procoagulant therapy [Unknown]
  - Syncope [Unknown]
  - Hepatobiliary disease [Unknown]
  - Blood disorder [Unknown]
  - Shock [Unknown]
  - Hypotension [Unknown]
  - Cardiac tamponade [Recovered/Resolved]
  - Haemodynamic rebound [Recovered/Resolved]
  - Multiple organ dysfunction syndrome [Unknown]
